FAERS Safety Report 5531708-2 (Version None)
Quarter: 2007Q4

REPORT INFORMATION
  Report Type: 
  Country: None (occurrence: None)
  Receive Date: 20071128
  Receipt Date: 20071115
  Transmission Date: 20080405
  Serious: Yes (Other)
  Sender: FDA-Public Use
  Company Number: 2007320352

PATIENT
  Age: 14 Year
  Sex: Male
  Weight: 79.3795 kg

DRUGS (1)
  1. LISTERINE AGENT COOL BLUE (UNSPECIFIED) (NO ACTIVE INGREDIENT) [Suspect]
     Dosage: ONCE DAILY AT NIGHT, ORAL
     Route: 048
     Dates: start: 20070218, end: 20070311

REACTIONS (8)
  - DIARRHOEA HAEMORRHAGIC [None]
  - DUODENITIS [None]
  - GASTRITIS [None]
  - INFLAMMATORY BOWEL DISEASE [None]
  - PYREXIA [None]
  - RECTAL HAEMORRHAGE [None]
  - RED BLOOD CELL SEDIMENTATION RATE INCREASED [None]
  - WEIGHT DECREASED [None]
